FAERS Safety Report 4416030-X (Version None)
Quarter: 2004Q3

REPORT INFORMATION
  Report Type: 
  Country: None (occurrence: None)
  Receive Date: 20040804
  Receipt Date: 20040804
  Transmission Date: 20050211
  Serious: Yes (Other)
  Sender: FDA-Public Use
  Company Number: None

PATIENT
  Age: 12 Year
  Sex: Male
  Weight: 66.6788 kg

DRUGS (2)
  1. GEODON [Suspect]
     Indication: ASPERGER'S DISORDER
     Dosage: MONTHS
  2. ADDERALL 20 [Concomitant]

REACTIONS (1)
  - PRIAPISM [None]
